FAERS Safety Report 6371672-X (Version None)
Quarter: 2009Q3

REPORT INFORMATION
  Report Type: 
  Country: None (occurrence: None)
  Receive Date: 20090923
  Receipt Date: 20080529
  Transmission Date: 20100115
  Serious: Yes (Hospitalization, Other)
  Sender: FDA-Public Use
  Company Number: US-ASTRAZENECA-2008UW00799

PATIENT
  Age: 16713 Day
  Sex: Female
  Weight: 63.5 kg

DRUGS (13)
  1. SEROQUEL [Suspect]
     Indication: SLEEP DISORDER
     Route: 048
     Dates: start: 20000101, end: 20070101
  2. SEROQUEL [Suspect]
     Indication: DEPRESSION
     Route: 048
     Dates: start: 20000101, end: 20070101
  3. SEROQUEL [Suspect]
     Route: 048
     Dates: start: 20000101, end: 20070101
  4. SEROQUEL [Suspect]
     Route: 048
     Dates: start: 20000101, end: 20070101
  5. SEROQUEL [Suspect]
     Dosage: 100-300 MG
     Route: 048
     Dates: start: 20040116
  6. SEROQUEL [Suspect]
     Dosage: 100-300 MG
     Route: 048
     Dates: start: 20040116
  7. LITHIUM [Concomitant]
  8. FLOVENT [Concomitant]
     Dates: start: 20040116
  9. MIRTAZAPINE [Concomitant]
     Dosage: STRENGTH 15 MG, 30 MG
     Dates: start: 20040116
  10. LEXAPRO [Concomitant]
     Dates: start: 20040116
  11. DIAZEPAM [Concomitant]
     Dates: start: 20040116
  12. LITHIUM CARBONATE [Concomitant]
     Dosage: 300
     Dates: start: 20040217
  13. ALBUTEROL [Concomitant]
     Dates: start: 20040514

REACTIONS (8)
  - ABDOMINAL PAIN LOWER [None]
  - DIABETES MELLITUS [None]
  - DIABETES MELLITUS INADEQUATE CONTROL [None]
  - DYSURIA [None]
  - PAIN IN EXTREMITY [None]
  - POLLAKIURIA [None]
  - TYPE 1 DIABETES MELLITUS [None]
  - URINARY TRACT INFECTION [None]
